FAERS Safety Report 9661340 (Version 1)
Quarter: 2013Q4

REPORT INFORMATION
  Report Type: Spontaneous
  Country: US (occurrence: US)
  Receive Date: 20131031
  Receipt Date: 20131031
  Transmission Date: 20140711
  Serious: No
  Sender: FDA-Public Use
  Company Number: US-PURDUE-USA-2011-0067423

PATIENT
  Age: 27 Year
  Sex: Female
  Weight: 54.42 kg

DRUGS (1)
  1. OXYCODONE HCL IMMEDIATE RELEASE (91-490) [Suspect]
     Indication: PRODUCT USED FOR UNKNOWN INDICATION

REACTIONS (1)
  - Sedation [Unknown]
